FAERS Safety Report 16444107 (Version 1)
Quarter: 2019Q2

REPORT INFORMATION
  Report Type: Spontaneous
  Country: DK (occurrence: DK)
  Receive Date: 20190618
  Receipt Date: 20190618
  Transmission Date: 20190711
  Serious: Yes (Hospitalization, Other)
  Sender: FDA-Public Use
  Company Number: DK-GLAXOSMITHKLINE-DK2019106453

PATIENT
  Age: 64 Year
  Sex: Female

DRUGS (4)
  1. CIPROFLOXACIN. [Concomitant]
     Active Substance: CIPROFLOXACIN
     Indication: BACTERIAL INFECTION
     Dosage: STRENGTH: UNKNOWN. DOSAGE: UNKNOWN.
     Route: 048
     Dates: start: 20180806, end: 20180808
  2. CEFUROXIME SODIUM. [Suspect]
     Active Substance: CEFUROXIME SODIUM
     Dosage: STRENGTH: UNKNOWN. DOSAGE: UNKNOWN.
     Route: 042
     Dates: start: 20180808, end: 20180817
  3. CEFUROXIME SODIUM. [Suspect]
     Active Substance: CEFUROXIME SODIUM
     Indication: BACTERIAL INFECTION
     Dosage: STRENGTH: UNKNOWN. DOSAGE: UNKNOWN.
     Route: 042
     Dates: start: 20180719, end: 20180729
  4. CEFUROXIME SODIUM. [Suspect]
     Active Substance: CEFUROXIME SODIUM
     Dosage: STRENGTH: UNKNOWN. DOSAGE: UNKNOWN.
     Route: 042
     Dates: start: 20180802, end: 20180805

REACTIONS (7)
  - Pyrexia [Recovered/Resolved]
  - Erythema [Recovered/Resolved]
  - Rash [Recovered/Resolved]
  - Swelling [Recovered/Resolved]
  - Drug hypersensitivity [Recovered/Resolved]
  - Enterococcal infection [Recovered/Resolved]
  - Pruritus generalised [Recovered/Resolved]

NARRATIVE: CASE EVENT DATE: 201807
